FAERS Safety Report 12194504 (Version 1)
Quarter: 2016Q1

REPORT INFORMATION
  Report Type: Spontaneous
  Country: US (occurrence: None)
  Receive Date: 20160318
  Receipt Date: 20160318
  Transmission Date: 20160526
  Serious: Yes (Other)
  Sender: FDA-Public Use
  Company Number: None

PATIENT
  Age: 54 Year
  Sex: Female
  Weight: 48.99 kg

DRUGS (4)
  1. LEXAPRO [Suspect]
     Active Substance: ESCITALOPRAM OXALATE
     Indication: ANXIETY
     Route: 048
     Dates: start: 1998
  2. TOPAMAX [Suspect]
     Active Substance: TOPIRAMATE
     Indication: MIGRAINE
     Dates: start: 2007
  3. LEXAPRO [Suspect]
     Active Substance: ESCITALOPRAM OXALATE
     Indication: STRESS
     Route: 048
     Dates: start: 1998
  4. TOPAMAX [Suspect]
     Active Substance: TOPIRAMATE
     Indication: PROPHYLAXIS
     Dates: start: 2007

REACTIONS (8)
  - Hypoaesthesia [None]
  - Product substitution issue [None]
  - Headache [None]
  - Rash [None]
  - Throat tightness [None]
  - Nausea [None]
  - Vomiting [None]
  - Vision blurred [None]

NARRATIVE: CASE EVENT DATE: 20160220
